FAERS Safety Report 17565848 (Version 4)
Quarter: 2020Q3

REPORT INFORMATION
  Report Type: Spontaneous
  Country: US (occurrence: US)
  Receive Date: 20200320
  Receipt Date: 20200911
  Transmission Date: 20201102
  Serious: No
  Sender: FDA-Public Use
  Company Number: US-IPSEN BIOPHARMACEUTICALS, INC.-2020-05591

PATIENT
  Age: 38 Year
  Sex: Male

DRUGS (2)
  1. SOMATULINE DEPOT [Suspect]
     Active Substance: LANREOTIDE ACETATE
     Indication: ACROMEGALY
     Route: 058
     Dates: start: 20180205
  2. SOMAVERT [Concomitant]
     Active Substance: PEGVISOMANT

REACTIONS (4)
  - Tooth disorder [Unknown]
  - Drug ineffective [Unknown]
  - Insulin-like growth factor increased [Not Recovered/Not Resolved]
  - Back pain [Unknown]
